FAERS Safety Report 6002500-X (Version None)
Quarter: 2008Q4

REPORT INFORMATION
  Report Type: 
  Country: None (occurrence: None)
  Receive Date: 20081215
  Receipt Date: 20071128
  Transmission Date: 20090506
  Serious: No
  Sender: FDA-Public Use
  Company Number: US-AMGEN-KDL254646

PATIENT
  Sex: Male

DRUGS (2)
  1. ENBREL [Suspect]
     Indication: RHEUMATOID ARTHRITIS
     Route: 058
     Dates: start: 20060401
  2. PLAQUENIL [Concomitant]
     Dates: start: 20010101

REACTIONS (5)
  - BODY TEMPERATURE INCREASED [None]
  - NASAL CONGESTION [None]
  - NAUSEA [None]
  - SNEEZING [None]
  - VOMITING [None]
